FAERS Safety Report 9799403 (Version 3)
Quarter: 2014Q1

REPORT INFORMATION
  Report Type: Spontaneous
  Country: IT (occurrence: None)
  Receive Date: 20131231
  Receipt Date: 20140224
  Transmission Date: 20141002
  Serious: Yes (Hospitalization)
  Sender: FDA-Public Use
  Company Number: AUR-APL-2013-10746

PATIENT
  Age: 59 Year
  Sex: Female

DRUGS (4)
  1. LORAZEPAM [Suspect]
     Indication: PSYCHOTIC DISORDER
     Dosage: (2.5 MG, 1 D), ORAL
     Route: 048
     Dates: start: 20130203, end: 20130527
  2. OLANZAPINE (OLANZAPINE) [Suspect]
     Indication: PSYCHOTIC DISORDER
     Dosage: (20 MG, 1 D), ORAL
     Route: 048
     Dates: start: 20130203, end: 20130527
  3. MOVICOL (POLYETHYL. GLYC. W/POTAS. CHLOR./SOD. BICARB.) [Concomitant]
  4. METFORMIN (METFORMIN) [Concomitant]

REACTIONS (2)
  - Coma [None]
  - Hyponatraemia [None]
